FAERS Safety Report 9832308 (Version 2)
Quarter: 2014Q1

REPORT INFORMATION
  Report Type: Spontaneous
  Country: US (occurrence: US)
  Receive Date: 20140121
  Receipt Date: 20140121
  Transmission Date: 20141002
  Serious: No
  Sender: FDA-Public Use
  Company Number: US-GLAXOSMITHKLINE-A0899240A

PATIENT
  Age: 60 Year
  Sex: Male

DRUGS (3)
  1. AVANDARYL [Suspect]
     Indication: DIABETES MELLITUS
     Route: 065
     Dates: start: 200701, end: 200706
  2. AVANDAMET [Suspect]
     Indication: DIABETES MELLITUS
     Dosage: 1TAB TWICE PER DAY
     Route: 048
     Dates: start: 200410, end: 2004
  3. AVANDIA [Suspect]
     Indication: DIABETES MELLITUS
     Dosage: 4MG PER DAY
     Route: 048
     Dates: start: 20000501, end: 2006

REACTIONS (5)
  - Chest pain [Not Recovered/Not Resolved]
  - Arteriosclerosis [Unknown]
  - Angina pectoris [Unknown]
  - Arrhythmia [Unknown]
  - Heart rate irregular [Unknown]
